FAERS Safety Report 4402074-0 (Version None)
Quarter: 2004Q3

REPORT INFORMATION
  Report Type: 
  Country: None (occurrence: None)
  Receive Date: 20040719
  Receipt Date: 20040719
  Transmission Date: 20050211
  Serious: Yes (Disabling, Other)
  Sender: FDA-Public Use
  Company Number: None

PATIENT
  Sex: Male
  Weight: 90.7194 kg

DRUGS (2)
  1. PAXIL [Suspect]
     Indication: ANXIETY
     Dosage: ONE TABLET DAILY ORAL
     Route: 048
  2. PAXIL [Suspect]
     Indication: DEPRESSION
     Dosage: ONE TABLET DAILY ORAL
     Route: 048

REACTIONS (4)
  - DEPRESSION [None]
  - DRUG WITHDRAWAL SYNDROME [None]
  - IMPAIRED WORK ABILITY [None]
  - MEMORY IMPAIRMENT [None]
